FAERS Safety Report 5050520-4 (Version None)
Quarter: 2006Q3

REPORT INFORMATION
  Report Type: 
  Country: None (occurrence: None)
  Receive Date: 20060707
  Receipt Date: 20060629
  Transmission Date: 20061208
  Serious: Yes (Death)
  Sender: FDA-Public Use
  Company Number: 430007E06ITA

PATIENT
  Age: 70 Year
  Sex: Male

DRUGS (3)
  1. NOVANTRONE (MITOXANTRONE HYDROCHLORIDE) [Suspect]
     Dosage: 10 MG
     Dates: start: 20060601, end: 20060605
  2. CYTARABINE [Suspect]
     Dosage: 180 MG
     Dates: start: 20060601, end: 20060607
  3. ETOPOSIDE [Suspect]
     Dosage: 180  MG
     Dates: start: 20060601, end: 20060603

REACTIONS (7)
  - BLOOD CULTURE POSITIVE [None]
  - CHILLS [None]
  - MULTI-ORGAN FAILURE [None]
  - PSEUDOMONAS INFECTION [None]
  - PYREXIA [None]
  - RESPIRATORY DISTRESS [None]
  - SEPTIC SHOCK [None]
